FAERS Safety Report 8291078-6 (Version None)
Quarter: 2012Q2

REPORT INFORMATION
  Report Type: 
  Country: None (occurrence: None)
  Receive Date: 20120417
  Receipt Date: 20110902
  Transmission Date: 20120825
  Serious: No
  Sender: FDA-Public Use
  Company Number: US-ASTRAZENECA-2011SE53292

PATIENT
  Sex: Female

DRUGS (76)
  1. LISINOPRIL AND HYDROCHLOROTHIAZIDE [Suspect]
     Dosage: 10 - 12.5 TAKE ONE TABLET BY MOUTH DAILY
     Route: 048
     Dates: start: 20110324
  2. CRESTOR [Suspect]
     Route: 048
     Dates: start: 20110225
  3. GLYBURIDE [Concomitant]
     Route: 048
     Dates: start: 20110411
  4. LEVOTHYROXINE SODIUM [Concomitant]
     Route: 048
     Dates: start: 20110427
  5. METFORMIN HCL [Concomitant]
     Route: 048
     Dates: start: 20110727
  6. METFORMIN HCL [Concomitant]
     Route: 048
     Dates: start: 20110526
  7. METFORMIN HCL [Concomitant]
     Route: 048
     Dates: start: 20110427
  8. METFORMIN HCL [Concomitant]
     Route: 048
     Dates: start: 20110323
  9. PREDNISONE TAB [Concomitant]
     Dosage: 6TAB DAILY FOR 2 DAY,5TAB DAILY FOR 3 DAY,4TAB DAILY FOR 3 DAY,3TAB DAILY FOR 3 DAY,2TAB DAILYFOR3DY
     Route: 048
     Dates: start: 20101123
  10. PULMONES MIS [Concomitant]
     Dosage: COMP/NEB USE AS DIRECTED
     Dates: start: 20101123
  11. NEXIUM [Suspect]
     Route: 048
     Dates: start: 20110630
  12. LISINOPRIL AND HYDROCHLOROTHIAZIDE [Suspect]
     Dosage: 10 - 12.5 TAKE ONE TABLET BY MOUTH DAILY
     Route: 048
     Dates: start: 20100826
  13. GABAPENTIN [Concomitant]
     Route: 048
     Dates: start: 20110427
  14. CYCLOBENZAPRINE HYDROCHLORIDE [Concomitant]
     Route: 048
     Dates: start: 20110509
  15. CYCLOBENZAPRINE HYDROCHLORIDE [Concomitant]
     Route: 048
     Dates: start: 20101029
  16. BISOPROLOL FUMARATE [Concomitant]
     Route: 048
     Dates: start: 20110630
  17. BISOPROLOL FUMARATE [Concomitant]
     Route: 048
     Dates: start: 20110505
  18. BISOPROLOL FUMARATE [Concomitant]
     Route: 048
     Dates: start: 20110401
  19. LEVOTHYROXINE SODIUM [Concomitant]
     Route: 048
     Dates: start: 20110628
  20. LEVOTHYROXINE SODIUM [Concomitant]
     Route: 048
     Dates: start: 20110126
  21. LEVOTHYROXINE SODIUM [Concomitant]
     Route: 048
     Dates: start: 20101012
  22. METFORMIN HCL [Concomitant]
     Route: 048
     Dates: start: 20110107
  23. VITAMIN D [Concomitant]
     Dosage: 50000 UNIT TAKE ONE CAPSULE WEEKLY FOR 12 WEEKS
     Route: 048
     Dates: start: 20110310
  24. CRESTOR [Suspect]
     Route: 048
     Dates: start: 20110428
  25. CRESTOR [Suspect]
     Route: 048
     Dates: start: 20110727
  26. GLYBURIDE [Concomitant]
     Route: 048
     Dates: start: 20110713
  27. BISOPROLOL FUMARATE [Concomitant]
     Route: 048
     Dates: start: 20100903
  28. LEVOTHYROXINE SODIUM [Concomitant]
     Route: 048
     Dates: start: 20101109
  29. LEVOTHYROXINE SODIUM [Concomitant]
     Route: 048
     Dates: start: 20100910
  30. NEXIUM [Suspect]
     Route: 048
     Dates: start: 20100921
  31. NEXIUM [Suspect]
     Route: 048
     Dates: start: 20110126
  32. GLYBURIDE [Concomitant]
     Route: 048
     Dates: start: 20110613
  33. GABAPENTIN [Concomitant]
     Route: 048
     Dates: start: 20110601
  34. GABAPENTIN [Concomitant]
     Dosage: ONE CAPSULE TWO TIMES A DAY FOR THREE DAYS THEN THREE TIMES A DAY THEREAFTER
     Route: 048
     Dates: start: 20110324
  35. BISOPROLOL FUMARATE [Concomitant]
     Route: 048
     Dates: start: 20110801
  36. BISOPROLOL FUMARATE [Concomitant]
     Route: 048
     Dates: start: 20101223
  37. BISOPROLOL FUMARATE [Concomitant]
     Route: 048
     Dates: start: 20101109
  38. BISOPROLOL FUMARATE [Concomitant]
     Route: 048
     Dates: start: 20101008
  39. LEVOTHYROXINE SODIUM [Concomitant]
     Route: 048
     Dates: start: 20110526
  40. LEVOTHYROXINE SODIUM [Concomitant]
     Route: 048
     Dates: start: 20110301
  41. CIPROFLOXACIN [Concomitant]
     Route: 048
     Dates: start: 20101123
  42. NEXIUM [Suspect]
     Route: 048
     Dates: start: 20110802
  43. LISINOPRIL AND HYDROCHLOROTHIAZIDE [Suspect]
     Dosage: 10 - 12.5 TAKE ONE TABLET BY MOUTH DAILY
     Route: 048
     Dates: start: 20110611
  44. CRESTOR [Suspect]
     Route: 048
     Dates: start: 20110526
  45. CRESTOR [Suspect]
     Route: 048
     Dates: start: 20110628
  46. GABAPENTIN [Concomitant]
     Route: 048
     Dates: start: 20110713
  47. CYCLOBENZAPRINE HYDROCHLORIDE [Concomitant]
     Indication: MUSCLE SPASMS
     Route: 048
     Dates: start: 20110801
  48. LEVOTHYROXINE SODIUM [Concomitant]
     Route: 048
     Dates: start: 20101222
  49. METFORMIN HCL [Concomitant]
     Route: 048
     Dates: start: 20100904
  50. NEXIUM [Suspect]
     Route: 048
     Dates: start: 20110601
  51. CRESTOR [Suspect]
     Route: 048
     Dates: start: 20110324
  52. GLYBURIDE [Concomitant]
     Route: 048
     Dates: start: 20110509
  53. BISOPROLOL FUMARATE [Concomitant]
     Route: 048
     Dates: start: 20110601
  54. BISOPROLOL FUMARATE [Concomitant]
     Route: 048
     Dates: start: 20110126
  55. METFORMIN HCL [Concomitant]
     Route: 048
     Dates: start: 20110628
  56. METFORMIN HCL [Concomitant]
     Route: 048
     Dates: start: 20110210
  57. ALBUTEROL [Concomitant]
     Indication: DYSPNOEA
     Dosage: 0.083 PERCENT 180 M USE ONE VIAL IN NEBULIZER EVERY FOUR HOURS AS NEEDED
     Dates: start: 20101123
  58. AFLURIA [Concomitant]
     Dosage: PF 10-11 AS DIRECTED
     Dates: start: 20101008
  59. DIAZEPAM [Concomitant]
     Dosage: TAKE ONE TAB 45 MINUTES BEFORE PROCEDURE MAY REPEAT 15 MIN BEFORE PROCEDURE
     Route: 048
     Dates: start: 20100917
  60. NEXIUM [Suspect]
     Route: 048
     Dates: start: 20110401
  61. NEXIUM [Suspect]
     Route: 048
     Dates: start: 20110428
  62. CRESTOR [Suspect]
     Route: 048
     Dates: start: 20101029
  63. CRESTOR [Suspect]
     Route: 048
     Dates: start: 20101129
  64. GLYBURIDE [Concomitant]
     Route: 048
     Dates: start: 20110310
  65. GABAPENTIN [Concomitant]
     Route: 048
     Dates: start: 20110811
  66. LEVOTHYROXINE SODIUM [Concomitant]
     Route: 048
     Dates: start: 20110727
  67. METFORMIN HCL [Concomitant]
     Route: 048
     Dates: start: 20101115
  68. LYRICA [Concomitant]
     Dosage: TAKE ONE CAPSULE TWO TIMES A DAY FOR SEVEN DAYS THEN INCREASED TO TWO TIMES A DAY
     Route: 048
     Dates: start: 20110304
  69. NEXIUM [Suspect]
     Route: 048
     Dates: start: 20110301
  70. LISINOPRIL AND HYDROCHLOROTHIAZIDE [Suspect]
     Dosage: 10 - 12.5 TAKE ONE TABLET BY MOUTH DAILY
     Route: 048
     Dates: start: 20101222
  71. CRESTOR [Suspect]
     Route: 048
     Dates: start: 20101129
  72. CRESTOR [Suspect]
     Route: 048
     Dates: start: 20110126
  73. GLYBURIDE [Concomitant]
     Route: 048
     Dates: start: 20110811
  74. CYCLOBENZAPRINE HYDROCHLORIDE [Concomitant]
     Route: 048
     Dates: start: 20110210
  75. BISOPROLOL FUMARATE [Concomitant]
     Route: 048
     Dates: start: 20110301
  76. LEVOTHYROXINE SODIUM [Concomitant]
     Route: 048
     Dates: start: 20110310

REACTIONS (2)
  - DYSPNOEA [None]
  - MUSCLE SPASMS [None]
